FAERS Safety Report 8491901-6 (Version None)
Quarter: 2012Q3

REPORT INFORMATION
  Report Type: 
  Country: None (occurrence: None)
  Receive Date: 20120706
  Receipt Date: 20111201
  Transmission Date: 20120928
  Serious: No
  Sender: FDA-Public Use
  Company Number: US-GLAXOSMITHKLINE-A0956221A

PATIENT
  Age: 69 Year
  Sex: Male

DRUGS (6)
  1. LISINOPRIL [Concomitant]
  2. METOPROLOL [Concomitant]
  3. TRICOR [Concomitant]
  4. FLOVENT [Suspect]
     Indication: ASTHMA
     Dosage: 220MCG FOUR TIMES PER DAY
     Route: 055
  5. PRADAXA [Concomitant]
  6. VYTORIN [Concomitant]

REACTIONS (6)
  - DYSPNOEA [None]
  - DRUG INEFFECTIVE [None]
  - COUGH [None]
  - PRODUCTIVE COUGH [None]
  - PRODUCT QUALITY ISSUE [None]
  - ILL-DEFINED DISORDER [None]
